FAERS Safety Report 5680813-9 (Version None)
Quarter: 2008Q1

REPORT INFORMATION
  Report Type: 
  Country: None (occurrence: None)
  Receive Date: 20080326
  Receipt Date: 20080325
  Transmission Date: 20080703
  Serious: Yes (Hospitalization)
  Sender: FDA-Public Use
  Company Number: US-BOEHRINGER INGELHEIM GMBH, GERMANY-2008-DE-01744GD

PATIENT
  Age: 44 Year
  Sex: Female

DRUGS (5)
  1. MORPHINE [Suspect]
     Indication: CANCER PAIN
     Route: 037
  2. MORPHINE SULFATE [Suspect]
     Indication: CANCER PAIN
     Dosage: 1 MG/ML; DEMAND = 2 MG, LOCKOUT = 6 MIN; BASAL RATE = 1 MG/H
  3. MORPHINE SULFATE [Suspect]
     Dosage: 1 MG - 6 MG
     Route: 008
  4. MS CONTIN [Suspect]
     Indication: CANCER PAIN
  5. LORAZEPAM [Suspect]
     Indication: CANCER PAIN
     Dosage: 4 MG - 6 MG

REACTIONS (2)
  - DRUG INEFFECTIVE [None]
  - SOMNOLENCE [None]
